FAERS Safety Report 8853245 (Version 3)
Quarter: 2013Q3

REPORT INFORMATION
  Report Type: Spontaneous
  Country: US (occurrence: US)
  Receive Date: 20121022
  Receipt Date: 20130801
  Transmission Date: 20140515
  Serious: No
  Sender: FDA-Public Use
  Company Number: US-BAYER-2012-107441

PATIENT
  Age: 21 Year
  Sex: Female
  Weight: 82.99 kg

DRUGS (3)
  1. MIRENA [Suspect]
     Indication: CONTRACEPTION
     Dosage: 20 MCG/24HR, CONT
     Route: 015
     Dates: start: 20120926, end: 20121010
  2. PRENATAL VITAMINS [Concomitant]
  3. LOESTRIN [Concomitant]

REACTIONS (1)
  - Pregnancy with contraceptive device [Recovered/Resolved]
